FAERS Safety Report 18373297 (Version 2)
Quarter: 2020Q4

REPORT INFORMATION
  Report Type: Spontaneous
  Country: JP (occurrence: JP)
  Receive Date: 20201012
  Receipt Date: 20201020
  Transmission Date: 20210114
  Serious: Yes (Disabling, Other)
  Sender: FDA-Public Use
  Company Number: JP-FERRINGPH-2020FE06975

PATIENT
  Age: 49 Year
  Sex: Female
  Weight: 51.4 kg

DRUGS (4)
  1. SENNOSIDE A [Suspect]
     Active Substance: SENNOSIDE A
     Indication: BOWEL PREPARATION
     Dosage: 2 DF, ONCE/SINGLE
     Route: 048
     Dates: start: 20200922, end: 20200922
  2. ELENTAL [Concomitant]
     Active Substance: AMINO ACIDS\CARBOHYDRATES\MINERALS\SOYBEAN OIL\VITAMINS
     Indication: BOWEL PREPARATION
     Dosage: 6 DF, 1 TIME DAILY
     Route: 048
     Dates: start: 20200922, end: 20200922
  3. ELENTAL [Concomitant]
     Active Substance: AMINO ACIDS\CARBOHYDRATES\MINERALS\SOYBEAN OIL\VITAMINS
     Dosage: 4 DF, 1 TIME DAILY
     Route: 048
     Dates: start: 20200921, end: 20200921
  4. PICOPREP [Suspect]
     Active Substance: ANHYDROUS CITRIC ACID\MAGNESIUM OXIDE\SODIUM PICOSULFATE
     Indication: BOWEL PREPARATION
     Dosage: 1 DF, 1 TIME DAILY
     Route: 048
     Dates: start: 20200921, end: 20200922

REACTIONS (8)
  - Off label use [Recovered/Resolved]
  - Peritonitis [Recovered/Resolved with Sequelae]
  - Anastomotic leak [Unknown]
  - Dehiscence [Recovered/Resolved with Sequelae]
  - Shock [Unknown]
  - Drug ineffective for unapproved indication [Recovered/Resolved]
  - Faecal volume increased [Unknown]
  - Product use in unapproved indication [Recovered/Resolved]

NARRATIVE: CASE EVENT DATE: 20200921
